FAERS Safety Report 8687770 (Version 2)
Quarter: 2012Q4

REPORT INFORMATION
  Report Type: 
  Country: AU (occurrence: AU)
  Receive Date: 20120727
  Receipt Date: 20120920
  Transmission Date: 20130627
  Serious: Yes (Death)
  Sender: FDA-Public Use
  Company Number: AU-B.I. PHARMACEUTICALS,INC./RIDGEFIELD-2012-AU-01292AU

PATIENT
  Sex: Female
  Weight: 80 kg

DRUGS (14)
  1. PRADAXA [Suspect]
     Indication: CEREBROVASCULAR ACCIDENT PROPHYLAXIS
     Dosage: 300 mg
     Dates: start: 20110912
  2. PRADAXA [Suspect]
     Indication: ATRIAL FIBRILLATION
  3. ALEPAM [Concomitant]
     Dosage: 15 mg
  4. ASMOL UNI DOSE [Concomitant]
     Dosage: 10 mg
  5. AZATHIOPRINE [Concomitant]
     Dosage: 50 mg
  6. BISOPROLOL [Concomitant]
     Dosage: 5 mg
  7. DUROGESIC [Concomitant]
     Dosage: 25mcg/hour
  8. KEFLEX [Concomitant]
     Dosage: 2000 mg
  9. LANOXIN PG [Concomitant]
     Dosage: 62.5 mcg
  10. NILSTAT ORAL [Concomitant]
     Dosage: 100000 IU/ml twice daily
  11. OSTELIN VITAMIN D [Concomitant]
     Dosage: 1000 U
  12. PANADOL OSTEO [Concomitant]
     Dosage: strength: 665 U; 1-2 three times a day
  13. PANTOPRAZOLE [Concomitant]
     Dosage: 40 mg
  14. TRIMETHOPRIM [Concomitant]
     Dosage: 300 mg

REACTIONS (1)
  - Hepatic cancer [Fatal]
